FAERS Safety Report 18617903 (Version 2)
Quarter: 2020Q4

REPORT INFORMATION
  Report Type: Spontaneous
  Country: ES (occurrence: ES)
  Receive Date: 20201215
  Receipt Date: 20201221
  Transmission Date: 20210114
  Serious: Yes (Hospitalization, Other)
  Sender: FDA-Public Use
  Company Number: ES-MYLANLABS-2020M1040491

PATIENT
  Age: 71 Year
  Sex: Male

DRUGS (22)
  1. NITROGLICERINA [Concomitant]
     Active Substance: NITROGLYCERIN
     Dosage: 1 DOSAGE FORM, (DAY - 1-0-0)
  2. ALLOPURINOL. [Concomitant]
     Active Substance: ALLOPURINOL
     Dosage: 1 DOSAGE FORM, QD
     Route: 065
  3. ACENOCOUMAROL [Interacting]
     Active Substance: ACENOCOUMAROL
     Indication: PRODUCT USED FOR UNKNOWN INDICATION
     Dosage: UNK
     Route: 065
  4. FUROSEMIDA                         /00032601/ [Concomitant]
     Active Substance: FUROSEMIDE
     Dosage: 40 MILLIGRAM (2-2-0)
     Route: 065
  5. SACUBITRIL W/VALSARTAN [Concomitant]
     Active Substance: SACUBITRIL\VALSARTAN
     Dosage: 1 DOSAGE FORM, (HOUR - 1-0-1)
     Route: 065
  6. METFORMIN [Concomitant]
     Active Substance: METFORMIN HYDROCHLORIDE
     Dosage: 850 MILLIGRAM, QD
     Route: 065
  7. SACUBITRIL [Concomitant]
     Active Substance: SACUBITRIL
     Dosage: 48 MILLIGRAM, QD (24 MG, BID (1-0-1))
     Route: 065
  8. VALSARTAN. [Concomitant]
     Active Substance: VALSARTAN
     Dosage: 52 MILLIGRAM, QD (SACUBITRIL 24MG/VALSARTAN 26MG (1-0-1))
     Route: 065
  9. FENOFIBRATE. [Suspect]
     Active Substance: FENOFIBRATE
     Indication: PRODUCT USED FOR UNKNOWN INDICATION
     Dosage: 160 MILLIGRAM, QD (0-0-1)
     Route: 065
     Dates: start: 2019, end: 2019
  10. DIGOXINA [Concomitant]
     Active Substance: DIGOXIN
     Dosage: 0.25 MILLIGRAM, (DAY - 1-0-0)
     Route: 065
  11. FUROSEMIDA                         /00032601/ [Concomitant]
     Active Substance: FUROSEMIDE
     Dosage: 80 MILLIGRAM, DAY (2-2-0)
     Route: 065
  12. CARVEDILOL. [Concomitant]
     Active Substance: CARVEDILOL
     Dosage: 25 MILLIGRAM, (HOUR - 1-0-1)
     Route: 065
  13. ALOPURINOL [Concomitant]
     Active Substance: ALLOPURINOL
     Dosage: 1 DOSAGE FORM, (DAY-0-1-0)
  14. HIDROCLOROTIAZIDA [Concomitant]
     Active Substance: HYDROCHLOROTHIAZIDE
     Dosage: 25 MILLIGRAM, (DAY - 1-0-0)
     Route: 065
  15. EPLERENONA [Concomitant]
     Active Substance: EPLERENONE
     Dosage: 25 MILLIGRAM, (DAY - 1-0-0)
     Route: 065
  16. LANSOPRAZOL [Concomitant]
     Active Substance: LANSOPRAZOLE
     Dosage: 30 MILLIGRAM, (HOUR - 1/48 H)
     Route: 065
  17. VILDAGLIPTIN [Concomitant]
     Active Substance: VILDAGLIPTIN
     Dosage: 100 MILLIGRAM, QD (50 MG, BID (1-0-1))
     Route: 065
  18. METFORMIN W/VILDAGLIPTIN [Concomitant]
     Active Substance: METFORMIN HYDROCHLORIDE\VILDAGLIPTIN
     Dosage: 1 DOSAGE FORM, (HOUR - 1-0-1)
  19. ALOPURINOL [Concomitant]
     Active Substance: ALLOPURINOL
     Dosage: (0-1-0)
     Route: 065
  20. TAMSULOSINA                        /01280301/ [Concomitant]
     Active Substance: TAMSULOSIN
     Dosage: 0.4 MILLIGRAM, (DAY - 1-0-0)
     Route: 065
  21. CINITAPRIDA                        /01065601/ [Concomitant]
     Active Substance: CINITAPRIDE
     Dosage: 10 MILLIGRAM, HOUR (1-1-1)
     Route: 065
  22. NITROGLICERINA [Concomitant]
     Active Substance: NITROGLYCERIN
     Dosage: (1-0-0)
     Route: 062

REACTIONS (3)
  - Myocardial infarction [Unknown]
  - Drug interaction [Recovering/Resolving]
  - International normalised ratio increased [Recovering/Resolving]
